FAERS Safety Report 5287966-5 (Version None)
Quarter: 2007Q2

REPORT INFORMATION
  Report Type: 
  Country: None (occurrence: None)
  Receive Date: 20070402
  Receipt Date: 20070402
  Transmission Date: 20071010
  Serious: Yes (Hospitalization)
  Sender: FDA-Public Use
  Company Number: None

PATIENT
  Age: 83 Year
  Sex: Male

DRUGS (1)
  1. TAXOL [Suspect]
     Indication: MALIGNANT MELANOMA
     Dosage: 107MG IN 250 ML/HR IV DRIP
     Route: 041
     Dates: start: 20070207, end: 20070207

REACTIONS (4)
  - FLUSHING [None]
  - HYPOTENSION [None]
  - MENTAL IMPAIRMENT [None]
  - OXYGEN SATURATION DECREASED [None]
